FAERS Safety Report 12971486 (Version 1)
Quarter: 2016Q4

REPORT INFORMATION
  Report Type: Spontaneous
  Country: US (occurrence: US)
  Receive Date: 20161123
  Receipt Date: 20161123
  Transmission Date: 20170207
  Serious: No
  Sender: FDA-Public Use
  Company Number: US-JAZZ-2016-US-019630

PATIENT
  Sex: Female
  Weight: 69.84 kg

DRUGS (15)
  1. AMLODIPINE BESYLATE. [Concomitant]
     Active Substance: AMLODIPINE BESYLATE
  2. IPRATROPIUM [Concomitant]
     Active Substance: IPRATROPIUM
  3. MELOXICAM. [Concomitant]
     Active Substance: MELOXICAM
  4. LOSARTAN POTASSIUM. [Concomitant]
     Active Substance: LOSARTAN POTASSIUM
  5. XYREM [Suspect]
     Active Substance: SODIUM OXYBATE
     Indication: NARCOLEPSY
     Dosage: 3 G, BID
     Route: 048
     Dates: start: 201609
  6. ZALEPLON. [Concomitant]
     Active Substance: ZALEPLON
  7. XYREM [Suspect]
     Active Substance: SODIUM OXYBATE
     Indication: SOMNOLENCE
     Dosage: 2.25 G, BID
     Route: 048
     Dates: start: 201609, end: 201609
  8. POTASSIUM CL ER [Concomitant]
     Active Substance: POTASSIUM CHLORIDE
  9. CHLORTHALIDONE. [Concomitant]
     Active Substance: CHLORTHALIDONE
  10. MAGNESIUM OXIDE. [Concomitant]
     Active Substance: MAGNESIUM OXIDE
  11. LYRICA [Concomitant]
     Active Substance: PREGABALIN
  12. ATORVASTATIN [Concomitant]
     Active Substance: ATORVASTATIN
  13. FLONASE ALLERGY RLF                /00908302/ [Concomitant]
  14. METHOCARBAMOL. [Concomitant]
     Active Substance: METHOCARBAMOL
  15. AZELASTINE [Concomitant]
     Active Substance: AZELASTINE

REACTIONS (1)
  - Dysgeusia [Unknown]

NARRATIVE: CASE EVENT DATE: 2016
